FAERS Safety Report 10150323 (Version 1)
Quarter: 2014Q2

REPORT INFORMATION
  Report Type: Spontaneous
  Country: US (occurrence: US)
  Receive Date: 20140502
  Receipt Date: 20140502
  Transmission Date: 20141212
  Serious: Yes (Death)
  Sender: FDA-Public Use
  Company Number: US-BRISTOL-MYERS SQUIBB COMPANY-20678819

PATIENT
  Sex: Female

DRUGS (3)
  1. BYETTA [Suspect]
     Indication: TYPE 2 DIABETES MELLITUS
     Dates: start: 2011, end: 2012
  2. JANUVIA [Suspect]
     Indication: TYPE 2 DIABETES MELLITUS
     Dates: start: 2008, end: 2009
  3. JANUMET [Suspect]
     Indication: TYPE 2 DIABETES MELLITUS
     Dates: start: 20100315, end: 201009

REACTIONS (1)
  - Pancreatic carcinoma [Fatal]
